FAERS Safety Report 25256824 (Version 1)
Quarter: 2025Q2

REPORT INFORMATION
  Report Type: Spontaneous
  Country: AT (occurrence: AT)
  Receive Date: 20250430
  Receipt Date: 20250430
  Transmission Date: 20250716
  Serious: Yes (Death, Hospitalization, Other)
  Sender: PURDUE
  Company Number: AT-PURDUE-USA-2025-0317056

PATIENT
  Age: 3 Year
  Sex: Female
  Weight: 21.5 kg

DRUGS (7)
  1. DEXTROAMPHETAMINE SACCHARATE, AMPHETAMINE ASPARTATE, DEXTROAMPHETAMINE [Suspect]
     Active Substance: AMPHETAMINE ASPARTATE\AMPHETAMINE SULFATE\DEXTROAMPHETAMINE SACCHARATE\DEXTROAMPHETAMINE SULFATE
     Indication: Product used for unknown indication
     Route: 048
  2. DRONABINOL [Suspect]
     Active Substance: DRONABINOL
     Indication: Product used for unknown indication
     Route: 048
  3. MORPHINE [Suspect]
     Active Substance: MORPHINE
     Indication: Product used for unknown indication
     Route: 065
  4. FENTANYL [Suspect]
     Active Substance: FENTANYL
     Indication: Intensive care
     Route: 065
  5. PROPOFOL [Suspect]
     Active Substance: PROPOFOL
     Indication: Intensive care
     Route: 065
  6. SUFENTANIL [Suspect]
     Active Substance: SUFENTANIL
     Indication: Product used for unknown indication
     Route: 065
  7. METHAMPHETAMINE [Suspect]
     Active Substance: METHAMPHETAMINE
     Indication: Product used for unknown indication
     Route: 065

REACTIONS (13)
  - B-cell type acute leukaemia [Fatal]
  - Pneumonia [Fatal]
  - Anaemia [Unknown]
  - Subendocardial haemorrhage [Unknown]
  - Brain oedema [Unknown]
  - Pulmonary oedema [Unknown]
  - Haemothorax [Unknown]
  - Splenomegaly [Unknown]
  - Renal fusion anomaly [Unknown]
  - Unresponsive to stimuli [Unknown]
  - Fall [Unknown]
  - Drug screen positive [Unknown]
  - Accidental exposure to product by child [Unknown]
